FAERS Safety Report 6725246-9 (Version None)
Quarter: 2010Q2

REPORT INFORMATION
  Report Type: 
  Country: None (occurrence: None)
  Receive Date: 20100514
  Receipt Date: 20100504
  Transmission Date: 20101027
  Serious: Yes (Hospitalization, Other)
  Sender: FDA-Public Use
  Company Number: US-JNJFOC-20100205745

PATIENT
  Sex: Male
  Weight: 70.31 kg

DRUGS (13)
  1. REMICADE [Suspect]
     Indication: CROHN'S DISEASE
     Route: 042
  2. REMICADE [Suspect]
     Route: 042
  3. GABITRIL [Concomitant]
     Indication: PAIN
     Dosage: FOR 3 MONTHS
  4. THYROID TAB [Concomitant]
     Indication: HYPERTHYROIDISM
     Dosage: FOR 4 YEARS
  5. PREDNISONE [Concomitant]
     Indication: ANTIINFLAMMATORY THERAPY
  6. PREDNISONE [Concomitant]
  7. ROZEREM [Concomitant]
     Indication: SLEEP DISORDER THERAPY
     Dosage: FOR 2 YEARS
  8. ZOLOFT [Concomitant]
     Indication: INJURY
     Dosage: FOR 5 YEARS
  9. ZOLOFT [Concomitant]
     Indication: DEPRESSION
     Dosage: FOR 5 YEARS
  10. OXYCODONE [Concomitant]
     Indication: PAIN
     Dosage: 5 MG TO 10 MG
  11. PRAZOSIN HCL [Concomitant]
     Indication: NIGHTMARE
     Dosage: FOR 2 YEARS
  12. TRAZODONE [Concomitant]
     Indication: SLEEP DISORDER THERAPY
     Dosage: FOR 2 YEARS
  13. LOMOTIL [Concomitant]
     Indication: DIARRHOEA
     Dosage: FOR 3 YEARS

REACTIONS (5)
  - ABDOMINAL HERNIA [None]
  - COMA [None]
  - DERMATITIS [None]
  - INTESTINAL STENOSIS [None]
  - LUPUS-LIKE SYNDROME [None]
